FAERS Safety Report 17413694 (Version 2)
Quarter: 2020Q1

REPORT INFORMATION
  Report Type: Spontaneous
  Country: SE (occurrence: SE)
  Receive Date: 20200213
  Receipt Date: 20200219
  Transmission Date: 20200409
  Serious: Yes (Other)
  Sender: FDA-Public Use
  Company Number: PHHY2019SE002330

PATIENT
  Age: 68 Year
  Sex: Female

DRUGS (5)
  1. INDOMETACIN [Interacting]
     Active Substance: INDOMETHACIN
     Indication: RHEUMATIC DISORDER
     Dosage: UNK
     Route: 065
  2. CIPROFLOXACIN HYDROCHLORIDE. [Suspect]
     Active Substance: CIPROFLOXACIN HYDROCHLORIDE
     Indication: OSTEOMYELITIS SALMONELLA
     Dosage: 500 MG, BID
     Route: 065
  3. NAPROXEN. [Interacting]
     Active Substance: NAPROXEN
     Indication: ANALGESIC INTERVENTION SUPPORTIVE THERAPY
     Dosage: 500 MG, 2X/DAY (BID WAS CONTINUED)
     Route: 065
  4. CHLOROQUINE. [Interacting]
     Active Substance: CHLOROQUINE
     Indication: ANALGESIC INTERVENTION SUPPORTIVE THERAPY
     Dosage: 250 MG, DAILY (MORE THAN FIVE YEARS)
     Route: 065
  5. CHLOROQUINE. [Interacting]
     Active Substance: CHLOROQUINE
     Indication: COLLAGEN DISORDER

REACTIONS (14)
  - Neuropathy peripheral [Recovering/Resolving]
  - Peripheral swelling [Recovering/Resolving]
  - Toxicity to various agents [Recovering/Resolving]
  - Pain in extremity [Recovering/Resolving]
  - Polyneuropathy [Unknown]
  - Decreased vibratory sense [Recovering/Resolving]
  - Dizziness [Recovering/Resolving]
  - Syncope [Recovering/Resolving]
  - Nerve degeneration [Recovering/Resolving]
  - Erythema [Recovering/Resolving]
  - Drug interaction [Recovering/Resolving]
  - Anxiety [Recovered/Resolved]
  - Tremor [Recovered/Resolved]
  - Systemic lupus erythematosus [Unknown]
